FAERS Safety Report 14920568 (Version 1)
Quarter: 2018Q2

REPORT INFORMATION
  Report Type: Spontaneous
  Country: US (occurrence: US)
  Receive Date: 20180521
  Receipt Date: 20180521
  Transmission Date: 20180711
  Serious: Yes (Other)
  Sender: FDA-Public Use
  Company Number: US-SHIRE-US201818420

PATIENT
  Age: 61 Year
  Sex: Male

DRUGS (1)
  1. NATPARA (PARATHYROID HORMONE) [Suspect]
     Active Substance: PARATHYROID HORMONE
     Indication: PRODUCT USED FOR UNKNOWN INDICATION
     Dosage: 75 ?G, 1X/DAY:QD
     Route: 058
     Dates: start: 20171226

REACTIONS (4)
  - Gait disturbance [Not Recovered/Not Resolved]
  - Sensory loss [Not Recovered/Not Resolved]
  - Injury [Unknown]
  - Fall [Recovered/Resolved]

NARRATIVE: CASE EVENT DATE: 20180429
